FAERS Safety Report 12920157 (Version 1)
Quarter: 2016Q4

REPORT INFORMATION
  Report Type: Spontaneous
  Country: BR (occurrence: BR)
  Receive Date: 20161108
  Receipt Date: 20161108
  Transmission Date: 20170207
  Serious: Yes (Other)
  Sender: FDA-Public Use
  Company Number: BR-TORRENT-00003660

PATIENT
  Age: 90 Year
  Weight: 52 kg

DRUGS (3)
  1. SERENATA [Suspect]
     Active Substance: SERTRALINE HYDROCHLORIDE
     Indication: TREMOR
     Dosage: SERENATA 50 MG, ONCE DAILY/ORAL.
     Route: 048
     Dates: start: 2011
  2. BETADINE 24 MG [Concomitant]
     Dosage: BETADINE 24 MG, ONCE DAILY/ORAL.
     Route: 048
     Dates: start: 2011
  3. EUPROSTATIN 2 MG [Concomitant]
     Indication: PROSTATOMEGALY
     Dosage: EUPROSTATIN 2 MG, ONCE DAILY/ORAL.
     Route: 048
     Dates: start: 2011

REACTIONS (8)
  - Tongue discomfort [None]
  - Product solubility abnormal [None]
  - Ageusia [Not Recovered/Not Resolved]
  - Off label use [Not Recovered/Not Resolved]
  - Tongue discomfort [Not Recovered/Not Resolved]
  - Poor quality drug administered [Not Recovered/Not Resolved]
  - Choking [Recovered/Resolved]
  - Product physical issue [None]

NARRATIVE: CASE EVENT DATE: 2011
